FAERS Safety Report 11449457 (Version 2)
Quarter: 2015Q4

REPORT INFORMATION
  Report Type: Spontaneous
  Country: CA (occurrence: CA)
  Receive Date: 20150903
  Receipt Date: 20151104
  Transmission Date: 20160304
  Serious: Yes (Other)
  Sender: FDA-Public Use
  Company Number: CA-AMGEN-CANSP2015089436

PATIENT
  Age: 52 Year
  Sex: Female

DRUGS (18)
  1. FOLIC ACID. [Suspect]
     Active Substance: FOLIC ACID
     Indication: PRODUCT USED FOR UNKNOWN INDICATION
     Dosage: 5 MG, QWK, EVERY WEDNESDAY FOR 90 DAYS
     Route: 048
     Dates: start: 20131015
  2. METHYLPREDNISOLONE. [Suspect]
     Active Substance: METHYLPREDNISOLONE
     Indication: PRODUCT USED FOR UNKNOWN INDICATION
     Dosage: 40 MG, UNK
     Route: 048
     Dates: start: 20140409
  3. METHOTREXATE [Suspect]
     Active Substance: METHOTREXATE
     Dosage: 2.5 MG, QWK, EVERY WEDNESDAY (5 TABLETS/WEEK) FOR 90 DAYS
     Route: 048
     Dates: start: 20140613
  4. NAPROXEN. [Suspect]
     Active Substance: NAPROXEN
     Indication: PRODUCT USED FOR UNKNOWN INDICATION
     Dosage: 500 MG, BID, FOR 90 DAYS
     Route: 048
     Dates: start: 20140613
  5. PARIET [Suspect]
     Active Substance: RABEPRAZOLE SODIUM
     Indication: PRODUCT USED FOR UNKNOWN INDICATION
     Dosage: 20 MG, QD, FOR 90 DAYS
     Route: 048
     Dates: start: 20131015
  6. RABEPRAZOLE SODIUM. [Concomitant]
     Active Substance: RABEPRAZOLE SODIUM
     Dosage: 20 MG, UNK
     Route: 048
  7. LEFLUNOMIDE. [Concomitant]
     Active Substance: LEFLUNOMIDE
     Dosage: UNK
  8. METHOTREXATE [Suspect]
     Active Substance: METHOTREXATE
     Indication: PRODUCT USED FOR UNKNOWN INDICATION
     Dosage: 25 MG, QWK
     Route: 048
  9. PARIET [Suspect]
     Active Substance: RABEPRAZOLE SODIUM
     Dosage: 20 MG, QD, FOR 90 DAYS
     Route: 048
     Dates: start: 20140613
  10. NAPROSYN [Suspect]
     Active Substance: NAPROXEN
     Indication: RHEUMATOID ARTHRITIS
     Dosage: 500 MG, QD, FOR 90 DAYS
     Route: 048
     Dates: start: 20130702
  11. RITUXAN [Suspect]
     Active Substance: RITUXIMAB
     Indication: PRODUCT USED FOR UNKNOWN INDICATION
     Dosage: UNK
     Route: 065
  12. HUMIRA [Suspect]
     Active Substance: ADALIMUMAB
     Indication: PRODUCT USED FOR UNKNOWN INDICATION
     Dosage: UNK
     Route: 065
  13. METHOTREXATE [Suspect]
     Active Substance: METHOTREXATE
     Dosage: 2.5 MG, QWK,EVERY TUESDAY 5 TABLETS ONCE A WEEK
     Route: 048
     Dates: start: 20131015
  14. NAPROXEN. [Suspect]
     Active Substance: NAPROXEN
     Dosage: 750 MG, BID, FOR 90 DAYS
     Route: 048
     Dates: start: 20140925
  15. ENBREL [Suspect]
     Active Substance: ETANERCEPT
     Indication: RHEUMATOID ARTHRITIS
     Dosage: UNK
     Route: 065
  16. IBUPROFEN. [Suspect]
     Active Substance: IBUPROFEN
     Indication: RHEUMATOID ARTHRITIS
     Dosage: 600 MG, TID, FOR 60 DAYS
     Route: 048
     Dates: start: 20140514
  17. FOLIC ACID. [Suspect]
     Active Substance: FOLIC ACID
     Dosage: 5 MG, QWK,EVERY FRIDAY FOR 90 DAYS
     Route: 048
     Dates: start: 20140613
  18. NAPROSYN [Suspect]
     Active Substance: NAPROXEN
     Dosage: 500 MG, BID, FOR 90 DAYS
     Route: 048
     Dates: start: 20130702

REACTIONS (11)
  - Rheumatoid arthritis [Unknown]
  - Stress [Unknown]
  - Mouth ulceration [Unknown]
  - Drug ineffective [Unknown]
  - Drug effect decreased [Unknown]
  - Obesity [Unknown]
  - Pain [Unknown]
  - Erythema [Unknown]
  - Drug hypersensitivity [Unknown]
  - Nasal ulcer [Unknown]
  - Swelling [Unknown]
